FAERS Safety Report 12681230 (Version 1)
Quarter: 2016Q3

REPORT INFORMATION
  Report Type: Spontaneous
  Country: US (occurrence: US)
  Receive Date: 20160824
  Receipt Date: 20160824
  Transmission Date: 20161109
  Serious: Yes (Other)
  Sender: FDA-Public Use
  Company Number: US-SA-2016SA153582

PATIENT
  Age: 60 Year
  Sex: Male

DRUGS (1)
  1. PLAVIX [Suspect]
     Active Substance: CLOPIDOGREL BISULFATE
     Indication: PROPHYLAXIS
     Route: 065
     Dates: start: 201607, end: 20160808

REACTIONS (9)
  - Jaundice cholestatic [Unknown]
  - Pyrexia [Recovering/Resolving]
  - Liver function test abnormal [Unknown]
  - Lymphopenia [Unknown]
  - Blood bilirubin increased [Unknown]
  - Urticaria [Unknown]
  - Leukopenia [Unknown]
  - Mouth ulceration [Unknown]
  - Thrombocytopenia [Unknown]
